FAERS Safety Report 4341274-5 (Version None)
Quarter: 2004Q1

REPORT INFORMATION
  Report Type: 
  Country: None (occurrence: None)
  Receive Date: 20040329
  Receipt Date: 20031204
  Transmission Date: 20041129
  Serious: No
  Sender: FDA-Public Use
  Company Number: 03P-163-0243671-00

PATIENT
  Age: 50 Year
  Sex: Male
  Weight: 73.9363 kg

DRUGS (2)
  1. HUMIRA [Suspect]
     Indication: RHEUMATOID ARTHRITIS
     Dosage: 40 MG,1 IN 2 WK, SUBCUTANEOUS
     Route: 058
     Dates: start: 20031201
  2. ATORVASTATIN [Concomitant]

REACTIONS (2)
  - INJECTION SITE PRURITUS [None]
  - INJECTION SITE SWELLING [None]
